FAERS Safety Report 18273900 (Version 2)
Quarter: 2020Q4

REPORT INFORMATION
  Report Type: Report from Study
  Country: MX (occurrence: MX)
  Receive Date: 20200916
  Receipt Date: 20201022
  Transmission Date: 20210113
  Serious: Yes (Death, Hospitalization)
  Sender: FDA-Public Use
  Company Number: MX-BAYER-2020-179305

PATIENT
  Age: 68 Year
  Sex: Female

DRUGS (2)
  1. ADEMPAS [Suspect]
     Active Substance: RIOCIGUAT
     Indication: PULMONARY HYPERTENSION
     Dosage: 2.5 MG, TID
     Route: 048
     Dates: start: 20200623, end: 20200821
  2. ADEMPAS [Suspect]
     Active Substance: RIOCIGUAT
     Indication: PULMONARY HYPERTENSION
     Dosage: 2.5 MG, Q8HR
     Route: 048
     Dates: start: 2020, end: 20200918

REACTIONS (4)
  - Therapy interrupted [None]
  - Acute myocardial infarction [Fatal]
  - Hospitalisation [Recovered/Resolved with Sequelae]
  - Fall [Recovering/Resolving]

NARRATIVE: CASE EVENT DATE: 20200805
